FAERS Safety Report 9517998 (Version 1)
Quarter: 2013Q3

REPORT INFORMATION
  Report Type: Spontaneous
  Country: US (occurrence: US)
  Receive Date: 20130912
  Receipt Date: 20130912
  Transmission Date: 20140515
  Serious: No
  Sender: FDA-Public Use
  Company Number: US-PFIZER INC-2013262385

PATIENT
  Age: 38 Year
  Sex: Male
  Weight: 92.97 kg

DRUGS (5)
  1. NEURONTIN [Suspect]
     Indication: CEREBROVASCULAR ACCIDENT
     Dosage: 1100 MG, 1X/DAY
     Dates: start: 2010, end: 2013
  2. NEURONTIN [Suspect]
     Indication: NEUROPATHY PERIPHERAL
  3. LYRICA [Suspect]
     Indication: CEREBROVASCULAR ACCIDENT
     Dosage: 75 MG, 2X/DAY
  4. LYRICA [Suspect]
     Indication: NEUROPATHY PERIPHERAL
  5. CARDIZEM [Concomitant]
     Indication: CARDIAC DISORDER
     Dosage: 360 MG, 2X/DAY

REACTIONS (2)
  - Off label use [Unknown]
  - Drug ineffective for unapproved indication [Unknown]
